FAERS Safety Report 8427477-9 (Version None)
Quarter: 2012Q2

REPORT INFORMATION
  Report Type: 
  Country: None (occurrence: None)
  Receive Date: 20120611
  Receipt Date: 20120605
  Transmission Date: 20120825
  Serious: Yes (Death, Other)
  Sender: FDA-Public Use
  Company Number: IT-ELI_LILLY_AND_COMPANY-IT201206002149

PATIENT
  Age: 40 Year
  Sex: Female

DRUGS (4)
  1. GEMCITABINE HYDROCHLORIDE [Suspect]
     Dosage: UNK UNK, UNKNOWN
  2. PEGYLATED LIPOSOMAL DOXORUBICIN HYDROCHLORIDE [Concomitant]
     Dosage: 25 MG/M2, DAY 1 THEN Q 21 DAYS
  3. GEMCITABINE HYDROCHLORIDE [Suspect]
     Indication: BREAST CANCER
     Dosage: 800 MG/M2, DAY 1 AND 8 THEN Q 21 DAYS
  4. PEGYLATED LIPOSOMAL DOXORUBICIN HYDROCHLORIDE [Concomitant]
     Dosage: UNK UNK, UNKNOWN

REACTIONS (6)
  - LEUKOPENIA [None]
  - NEOPLASM MALIGNANT [None]
  - EJECTION FRACTION DECREASED [None]
  - BREAST CANCER RECURRENT [None]
  - HAEMATOTOXICITY [None]
  - DEATH [None]
